FAERS Safety Report 9381758 (Version 1)
Quarter: 2013Q3

REPORT INFORMATION
  Report Type: Spontaneous
  Country: JP (occurrence: JP)
  Receive Date: 20130703
  Receipt Date: 20130703
  Transmission Date: 20140515
  Serious: Yes (Other)
  Sender: FDA-Public Use
  Company Number: JP-ASTELLAS-2013JP007133

PATIENT
  Age: 74 Year
  Sex: Male

DRUGS (2)
  1. BETANIS [Suspect]
     Dosage: 50 MG, UID/QD
     Route: 048
  2. TAMSULOISIN [Concomitant]
     Indication: BENIGN PROSTATIC HYPERPLASIA
     Route: 048

REACTIONS (2)
  - Renal impairment [Unknown]
  - Dizziness [Unknown]
